FAERS Safety Report 14268332 (Version 2)
Quarter: 2017Q4

REPORT INFORMATION
  Report Type: Report from Study
  Country: US (occurrence: US)
  Receive Date: 20171211
  Receipt Date: 20171221
  Transmission Date: 20180321
  Serious: Yes (Death, Hospitalization, Other)
  Sender: FDA-Public Use
  Company Number: US-BAYER-2017-209693

PATIENT
  Age: 87 Year
  Sex: Male

DRUGS (3)
  1. NEXAVAR [Suspect]
     Active Substance: SORAFENIB
     Indication: HEPATOCELLULAR CARCINOMA
     Dosage: 400 MG, BID
     Route: 048
     Dates: start: 20170913, end: 2017
  2. NEXAVAR [Suspect]
     Active Substance: SORAFENIB
     Indication: HEPATOCELLULAR CARCINOMA
     Dosage: 400 MG QD
     Route: 048
     Dates: start: 2017, end: 2017
  3. NEXAVAR [Suspect]
     Active Substance: SORAFENIB
     Indication: HEPATOCELLULAR CARCINOMA
     Dosage: 400 MG, BID
     Route: 048
     Dates: start: 2017, end: 2017

REACTIONS (9)
  - Rehabilitation therapy [None]
  - Infection [None]
  - Hospitalisation [None]
  - Hepatic function abnormal [None]
  - Skin lesion [None]
  - Death [Fatal]
  - Hospitalisation [None]
  - Liver function test decreased [None]
  - Dysphagia [None]

NARRATIVE: CASE EVENT DATE: 2017
